FAERS Safety Report 10786714 (Version 1)
Quarter: 2015Q1

REPORT INFORMATION
  Report Type: Spontaneous
  Country: BR (occurrence: BR)
  Receive Date: 20150211
  Receipt Date: 20150211
  Transmission Date: 20150721
  Serious: Yes (Hospitalization)
  Sender: FDA-Public Use
  Company Number: BR-BIOGENIDEC-2013BI069086

PATIENT
  Sex: Female

DRUGS (4)
  1. TYSABRI [Suspect]
     Active Substance: NATALIZUMAB
     Indication: MULTIPLE SCLEROSIS
     Route: 042
     Dates: start: 20120920, end: 20150115
  2. SERTRALINE [Concomitant]
     Active Substance: SERTRALINE HYDROCHLORIDE
     Indication: DEPRESSION
  3. COPAXONE [Concomitant]
     Active Substance: GLATIRAMER ACETATE
  4. TANDRILAX [Concomitant]
     Indication: MUSCLE RELAXANT THERAPY

REACTIONS (12)
  - Induration [Unknown]
  - Inflammation [Unknown]
  - Drug ineffective [Unknown]
  - Spinal pain [Unknown]
  - Decreased appetite [Unknown]
  - Asthenia [Unknown]
  - Gait disturbance [Unknown]
  - General symptom [Unknown]
  - Burning sensation [Not Recovered/Not Resolved]
  - Fatigue [Unknown]
  - Depression [Unknown]
  - Sensory disturbance [Not Recovered/Not Resolved]

NARRATIVE: CASE EVENT DATE: 201304
